FAERS Safety Report 23418213 (Version 1)
Quarter: 2024Q1

REPORT INFORMATION
  Report Type: Spontaneous
  Country: US (occurrence: None)
  Receive Date: 20240118
  Receipt Date: 20240118
  Transmission Date: 20240410
  Serious: Yes (Hospitalization)
  Sender: FDA-Public Use
  Company Number: None

PATIENT
  Age: 61 Year
  Sex: Male

DRUGS (2)
  1. ERLOTINIB [Suspect]
     Active Substance: ERLOTINIB
     Indication: Product used for unknown indication
     Dosage: 150MG DAILY ORAL?
     Route: 048
     Dates: start: 20231230
  2. ERLOTINIB [Suspect]
     Active Substance: ERLOTINIB
     Indication: Product used for unknown indication

REACTIONS (1)
  - Pyrexia [None]

NARRATIVE: CASE EVENT DATE: 20240101
